FAERS Safety Report 9928722 (Version 1)
Quarter: 2014Q1

REPORT INFORMATION
  Report Type: Spontaneous
  Country: DE (occurrence: DE)
  Receive Date: 20140227
  Receipt Date: 20140227
  Transmission Date: 20141002
  Serious: Yes (Other)
  Sender: FDA-Public Use
  Company Number: US-ASTRAZENECA-2014SE13206

PATIENT
  Sex: Female

DRUGS (9)
  1. BLOPRESS [Suspect]
     Indication: HYPERTENSION
     Route: 048
  2. BLOPRESS [Suspect]
     Indication: HYPERTENSION
     Dosage: 16 MG EVERY MORNING, 8 MG EVERY EVENING
     Route: 048
  3. BLOPRESS [Suspect]
     Indication: HYPERTENSION
     Dosage: 24 MG EVERY MORNING, 8 MG EVERY EVENING
     Route: 048
  4. BLOPRESS [Suspect]
     Indication: HYPERTENSION
     Dosage: 8 MG EVERY MORNING, 8 MG EVERY EVENING
     Route: 048
  5. BLOPRESS PLUS [Suspect]
     Indication: HYPERTENSION
     Dosage: 16 MG/12.5 MG
     Route: 048
     Dates: end: 2012
  6. BLOPRESS PLUS [Suspect]
     Indication: HYPERTENSION
     Dosage: 16 MG/12.5 MG, FREQUENCY UNKNOWN
     Route: 048
     Dates: start: 201402
  7. CLONISTADA [Concomitant]
     Dosage: UNK
     Dates: start: 201402
  8. DIURETICS [Concomitant]
     Dosage: UNK
     Dates: start: 201208
  9. ANTICOAGULANT (NOT FURTHER SPECIFIED) [Concomitant]
     Dosage: LOW DOSE, UNKNOWN
     Dates: start: 201208

REACTIONS (2)
  - Myocardial infarction [Unknown]
  - Blood pressure inadequately controlled [Not Recovered/Not Resolved]
